FAERS Safety Report 8850905 (Version 1)
Quarter: 2012Q4

REPORT INFORMATION
  Report Type: 
  Country: US (occurrence: US)
  Receive Date: 20121019
  Receipt Date: 20121019
  Transmission Date: 20130627
  Serious: No
  Sender: FDA-Public Use
  Company Number: US-PFIZER INC-2012260755

PATIENT
  Age: 64 Year
  Sex: Female
  Weight: 76.64 kg

DRUGS (3)
  1. EFFEXOR XR [Suspect]
     Indication: DEPRESSION
     Dosage: 50 mg, daily
     Dates: end: 20121016
  2. METOPROLOL [Concomitant]
     Indication: HYPERTENSION
     Dosage: 60 mg, 2x/day
  3. HYDROCHLOROTHIAZIDE [Concomitant]
     Indication: HYPERTENSION
     Dosage: 25 mg, daily

REACTIONS (2)
  - Blood cholesterol increased [Not Recovered/Not Resolved]
  - Dizziness [Not Recovered/Not Resolved]
